FAERS Safety Report 13366955 (Version 5)
Quarter: 2017Q3

REPORT INFORMATION
  Report Type: Report from Study
  Country: RU (occurrence: RU)
  Receive Date: 20170324
  Receipt Date: 20170721
  Transmission Date: 20171127
  Serious: Yes (Death, Life-Threatening, Hospitalization, Other)
  Sender: FDA-Public Use
  Company Number: RU-AMGEN-RUSSP2017044743

PATIENT
  Age: 18 Year
  Sex: Female

DRUGS (2)
  1. BLINATUMOMAB [Suspect]
     Active Substance: BLINATUMOMAB
     Indication: ACUTE LYMPHOCYTIC LEUKAEMIA
     Dosage: 9 MUG, QD
     Route: 042
     Dates: start: 20170126, end: 20170201
  2. BLINATUMOMAB [Suspect]
     Active Substance: BLINATUMOMAB
     Dosage: 28 MUG, QD
     Route: 042
     Dates: start: 20170201, end: 20170222

REACTIONS (22)
  - Osteochondrosis [Not Recovered/Not Resolved]
  - Hypertension [Recovering/Resolving]
  - Colitis erosive [Unknown]
  - Secondary immunodeficiency [Recovering/Resolving]
  - Bacterial sepsis [Fatal]
  - Gastritis erosive [Unknown]
  - Myalgia [Recovering/Resolving]
  - Multiple organ dysfunction syndrome [Recovering/Resolving]
  - Thrombocytopenia [Not Recovered/Not Resolved]
  - Chest pain [Recovering/Resolving]
  - Vomiting [Recovering/Resolving]
  - Alopecia [Not Recovered/Not Resolved]
  - Erosive oesophagitis [Unknown]
  - Leukoencephalopathy [Not Recovered/Not Resolved]
  - Injection site haemorrhage [Not Recovered/Not Resolved]
  - Pain [Recovering/Resolving]
  - Bone marrow failure [Recovered/Resolved]
  - Viral sepsis [Fatal]
  - Pancreatitis [Not Recovered/Not Resolved]
  - Thymus disorder [Unknown]
  - Gastrointestinal hypomotility [Recovering/Resolving]
  - Disseminated intravascular coagulation [Fatal]

NARRATIVE: CASE EVENT DATE: 20170221
